FAERS Safety Report 25289241 (Version 2)
Quarter: 2025Q2

REPORT INFORMATION
  Report Type: Spontaneous
  Country: FR (occurrence: FR)
  Receive Date: 20250509
  Receipt Date: 20250522
  Transmission Date: 20250716
  Serious: Yes (Hospitalization)
  Sender: JOHNSON AND JOHNSON
  Company Number: None

PATIENT
  Age: 17 Year
  Sex: Female
  Weight: 28 kg

DRUGS (4)
  1. TOPIRAMATE [Suspect]
     Active Substance: TOPIRAMATE
     Indication: Medication error
     Route: 048
     Dates: start: 20250405, end: 20250405
  2. CLOBAZAM [Suspect]
     Active Substance: CLOBAZAM
     Indication: Medication error
     Route: 048
     Dates: start: 20250405, end: 20250405
  3. CANNABIDIOL [Suspect]
     Active Substance: CANNABIDIOL
     Indication: Medication error
     Route: 048
     Dates: start: 20250405, end: 20250405
  4. VALPROATE SODIUM [Suspect]
     Active Substance: VALPROATE SODIUM
     Indication: Medication error
     Route: 048
     Dates: start: 20250405, end: 20250405

REACTIONS (3)
  - Mydriasis [Recovered/Resolved]
  - Wrong patient received product [Recovered/Resolved]
  - Wrong product administered [Recovered/Resolved]

NARRATIVE: CASE EVENT DATE: 20250405
